FAERS Safety Report 12191529 (Version 2)
Quarter: 2016Q1

REPORT INFORMATION
  Report Type: Spontaneous
  Country: GB (occurrence: GB)
  Receive Date: 20160318
  Receipt Date: 20160329
  Transmission Date: 20160526
  Serious: Yes (Other)
  Sender: FDA-Public Use
  Company Number: GB-AMGEN-GBRSP2016015730

PATIENT
  Age: 63 Year
  Sex: Female

DRUGS (2)
  1. ENBREL [Suspect]
     Active Substance: ETANERCEPT
     Indication: RHEUMATOID ARTHRITIS
     Dosage: 50 MG, WEEKLY
     Route: 058
     Dates: start: 20160115, end: 20160129
  2. ENBREL [Suspect]
     Active Substance: ETANERCEPT
     Dosage: 50 MG, WEEKLY
     Route: 058
     Dates: start: 201602, end: 2016

REACTIONS (15)
  - Vitamin B12 deficiency [Unknown]
  - Rash [Unknown]
  - Fungal skin infection [Recovered/Resolved]
  - Injection site erythema [Unknown]
  - Dizziness [Unknown]
  - Malaise [Unknown]
  - Injection site reaction [Unknown]
  - Injection site recall reaction [Unknown]
  - Ear disorder [Unknown]
  - Pruritus [Recovered/Resolved]
  - Drug ineffective [Unknown]
  - Lower respiratory tract infection [Unknown]
  - Fungal infection [Recovered/Resolved]
  - Injection site hypersensitivity [Unknown]
  - Balance disorder [Unknown]

NARRATIVE: CASE EVENT DATE: 2016
